FAERS Safety Report 9155723 (Version 1)
Quarter: 2013Q1

REPORT INFORMATION
  Report Type: Spontaneous
  Country: BR (occurrence: BR)
  Receive Date: 20130311
  Receipt Date: 20130311
  Transmission Date: 20140127
  Serious: Yes (Other)
  Sender: FDA-Public Use
  Company Number: BR-AMGEN-BRASP2013016336

PATIENT
  Age: 51 Year
  Sex: Female
  Weight: 67 kg

DRUGS (2)
  1. ENBREL [Suspect]
     Indication: RHEUMATOID ARTHRITIS
     Dosage: 50 MG, ONCE WEEKLY
     Route: 058
     Dates: start: 201208
  2. ARAVA [Suspect]
     Dosage: 20 MG, 1X/DAY
     Dates: start: 2007

REACTIONS (5)
  - Hypertension [Unknown]
  - Headache [Unknown]
  - Dysphonia [Unknown]
  - Influenza [Unknown]
  - Injection site pain [Unknown]
